FAERS Safety Report 6222276-0 (Version None)
Quarter: 2009Q2

REPORT INFORMATION
  Report Type: 
  Country: None (occurrence: None)
  Receive Date: 20090611
  Receipt Date: 20090601
  Transmission Date: 20091009
  Serious: Yes (Hospitalization, Other)
  Sender: FDA-Public Use
  Company Number: US-PFIZER INC-2009222546

PATIENT
  Sex: Female
  Weight: 74.842 kg

DRUGS (4)
  1. TIKOSYN [Suspect]
     Indication: ATRIAL FIBRILLATION
     Dosage: 250 UG, 2X/DAY
     Dates: start: 20070801
  2. VALSARTAN [Concomitant]
     Dosage: UNK
  3. TOPROL-XL [Concomitant]
     Dosage: UNK
  4. FAMOTIDINE [Concomitant]
     Dosage: UNK

REACTIONS (5)
  - ATRIAL FIBRILLATION [None]
  - CATARACT [None]
  - DENTAL CARIES [None]
  - EAR INFECTION [None]
  - LOW DENSITY LIPOPROTEIN INCREASED [None]
